FAERS Safety Report 8711058 (Version 4)
Quarter: 2014Q3

REPORT INFORMATION
  Report Type: Spontaneous
  Country: AU (occurrence: None)
  Receive Date: 20120720
  Receipt Date: 20140724
  Transmission Date: 20150326
  Serious: Yes (Hospitalization)
  Sender: FDA-Public Use
  Company Number: AUR-APL-2012-02610

PATIENT
  Sex: Female

DRUGS (5)
  1. PANADEINE FORTE (CODEINE PHOSPHATE PARACETAMOL) [Concomitant]
  2. TRAMADOL HYDROCHLORIDE. [Concomitant]
     Active Substance: TRAMADOL HYDROCHLORIDE
     Indication: PRODUCT USED FOR UNKNOWN INDICATION
  3. RISPERIDONE (RISPERIDONE) [Concomitant]
     Active Substance: RISPERIDONE
  4. AURO-QUETIAPINE 200 (QUETIAPINE) FILM-COATED TABLET, 200MG [Suspect]
     Active Substance: QUETIAPINE
     Indication: PRODUCT USED FOR UNKNOWN INDICATION
     Route: 048
     Dates: start: 20120517, end: 20120601
  5. IMOVANE (ZOPICLONE) [Concomitant]

REACTIONS (2)
  - Accidental overdose [None]
  - Hypersensitivity [None]

NARRATIVE: CASE EVENT DATE: 20120517
